FAERS Safety Report 8044749-0 (Version None)
Quarter: 2012Q1

REPORT INFORMATION
  Report Type: 
  Country: None (occurrence: None)
  Receive Date: 20120113
  Receipt Date: 20120106
  Transmission Date: 20120608
  Serious: Yes (Death, Hospitalization, Other)
  Sender: FDA-Public Use
  Company Number: CA-ELI_LILLY_AND_COMPANY-CA201111002409

PATIENT
  Age: 40 Year
  Sex: Female

DRUGS (5)
  1. CONCERTA [Concomitant]
     Dosage: 90 MG, UNK
  2. CYMBALTA [Suspect]
  3. ABILIFY [Concomitant]
     Indication: DEPRESSION
     Dosage: 20 MG, UNK
     Route: 048
     Dates: start: 20110101
  4. TOPAMAX [Concomitant]
     Dosage: 100 MG, UNK
  5. PROZAC [Suspect]
     Dosage: 60 MG, UNK

REACTIONS (8)
  - PNEUMONITIS [None]
  - LOSS OF CONSCIOUSNESS [None]
  - HYPOXIC-ISCHAEMIC ENCEPHALOPATHY [None]
  - DEEP VEIN THROMBOSIS [None]
  - LEFT VENTRICULAR DYSFUNCTION [None]
  - STATUS EPILEPTICUS [None]
  - CAROTID ARTERY ANEURYSM [None]
  - CARDIAC ARREST [None]
